FAERS Safety Report 25183937 (Version 2)
Quarter: 2025Q2

REPORT INFORMATION
  Report Type: Spontaneous
  Country: US (occurrence: US)
  Receive Date: 20250410
  Receipt Date: 20250417
  Transmission Date: 20250716
  Serious: Yes (Hospitalization)
  Sender: SANOFI AVENTIS
  Company Number: US-SA-2025SA102789

PATIENT
  Age: 71 Year
  Sex: Female

DRUGS (1)
  1. REZUROCK [Suspect]
     Active Substance: BELUMOSUDIL
     Indication: Chronic graft versus host disease
     Dosage: 200 MG, BID
     Dates: start: 20250319

REACTIONS (3)
  - Hospitalisation [Unknown]
  - Incorrect route of product administration [Unknown]
  - Inappropriate schedule of product administration [Unknown]

NARRATIVE: CASE EVENT DATE: 20250101
